FAERS Safety Report 12589151 (Version 1)
Quarter: 2016Q3

REPORT INFORMATION
  Report Type: Spontaneous
  Country: US (occurrence: US)
  Receive Date: 20160725
  Receipt Date: 20160725
  Transmission Date: 20161109
  Serious: No
  Sender: FDA-Public Use
  Company Number: US-JNJFOC-20160610728

PATIENT
  Sex: Female
  Weight: 56 kg

DRUGS (1)
  1. IMBRUVICA [Suspect]
     Active Substance: IBRUTINIB
     Indication: SPLENOMEGALY
     Route: 048
     Dates: start: 201603, end: 201605

REACTIONS (6)
  - Laceration [Not Recovered/Not Resolved]
  - Off label use [Recovered/Resolved]
  - Skin haemorrhage [Not Recovered/Not Resolved]
  - Skin atrophy [Unknown]
  - Chest pain [Unknown]
  - Product use issue [Recovered/Resolved]

NARRATIVE: CASE EVENT DATE: 2016
